FAERS Safety Report 16203016 (Version 4)
Quarter: 2020Q3

REPORT INFORMATION
  Report Type: Report from Study
  Country: DK (occurrence: DK)
  Receive Date: 20190416
  Receipt Date: 20191028
  Transmission Date: 20201105
  Serious: Yes (Hospitalization)
  Sender: FDA-Public Use
  Company Number: DK-JNJFOC-20190330177

PATIENT
  Age: 57 Year
  Sex: Male
  Weight: 98.5 kg

DRUGS (27)
  1. KALIUMCHLORIDE [Concomitant]
     Indication: PRIMARY HYPERALDOSTERONISM
     Route: 048
     Dates: start: 20160603, end: 20181004
  2. LIRAGLUTIDE [Concomitant]
     Active Substance: LIRAGLUTIDE
     Indication: DIABETES MELLITUS
     Route: 058
     Dates: start: 20170612, end: 20190331
  3. JERN C [Concomitant]
     Indication: ANAEMIA
     Route: 048
     Dates: start: 20190116, end: 20190416
  4. SODIUM CHLORIDE. [Concomitant]
     Active Substance: SODIUM CHLORIDE
     Indication: DIARRHOEA
     Route: 042
     Dates: start: 20181207
  5. SEMAGLUTIDE [Concomitant]
     Active Substance: SEMAGLUTIDE
     Indication: DIABETES MELLITUS
     Route: 058
     Dates: start: 20190203, end: 20190416
  6. NOVORAPID [Concomitant]
     Active Substance: INSULIN ASPART
     Indication: DIABETES MELLITUS
     Route: 058
     Dates: start: 20190409, end: 20190416
  7. ATORVASTATIN [Concomitant]
     Active Substance: ATORVASTATIN
     Indication: HYPERCHOLESTEROLAEMIA
     Route: 048
     Dates: start: 20181030
  8. IBRUTINIB [Suspect]
     Active Substance: IBRUTINIB
     Indication: CHRONIC LYMPHOCYTIC LEUKAEMIA
     Route: 048
     Dates: start: 20180926
  9. COLECALCIFEROL [Concomitant]
     Active Substance: CHOLECALCIFEROL
     Indication: SUPPLEMENTATION THERAPY
     Route: 048
     Dates: start: 20180801
  10. PIPERACILIN/TAZOBACTAM [Concomitant]
     Active Substance: PIPERACILLIN SODIUM\TAZOBACTAM SODIUM
     Indication: INFLUENZA
     Route: 065
     Dates: start: 20190202, end: 20190203
  11. VENETOCLAX. [Suspect]
     Active Substance: VENETOCLAX
     Indication: CHRONIC LYMPHOCYTIC LEUKAEMIA
     Route: 048
     Dates: start: 20190108
  12. SPIRONOLACTONE. [Concomitant]
     Active Substance: SPIRONOLACTONE
     Indication: HYPERTENSION
  13. SIMVASTATIN. [Concomitant]
     Active Substance: SIMVASTATIN
     Indication: HYPERCHOLESTEROLAEMIA
     Route: 048
     Dates: start: 20150814, end: 20181030
  14. METFORMIN [Concomitant]
     Active Substance: METFORMIN HYDROCHLORIDE
     Indication: DIABETES MELLITUS
     Route: 048
     Dates: start: 20161010
  15. ZOPICLONE [Concomitant]
     Active Substance: ZOPICLONE
     Indication: POLYARTHRITIS
     Route: 048
     Dates: start: 20181202, end: 20190321
  16. PARACETAMOL [Concomitant]
     Active Substance: ACETAMINOPHEN
     Indication: PAIN
     Route: 048
     Dates: start: 20180827
  17. ALTIFEX [Concomitant]
     Indication: URTICARIA
     Route: 048
     Dates: start: 20180912, end: 20190305
  18. PLAVIX [Concomitant]
     Active Substance: CLOPIDOGREL BISULFATE
     Indication: PROPHYLAXIS
     Route: 048
     Dates: start: 20150816, end: 20190321
  19. PANTOLOC [Concomitant]
     Active Substance: PANTOPRAZOLE SODIUM
     Indication: HIATUS HERNIA
     Route: 048
     Dates: start: 20160909
  20. TAMIFLU [Concomitant]
     Active Substance: OSELTAMIVIR PHOSPHATE
     Indication: INFLUENZA
     Route: 048
     Dates: start: 20190203, end: 20190207
  21. LOSARTAN. [Concomitant]
     Active Substance: LOSARTAN
     Indication: HYPERTENSION
     Route: 048
     Dates: start: 20180920
  22. SPIRONOLACTONE. [Concomitant]
     Active Substance: SPIRONOLACTONE
     Indication: PRIMARY HYPERALDOSTERONISM
     Route: 048
     Dates: start: 20180920, end: 20190305
  23. METOPROLOL. [Concomitant]
     Active Substance: METOPROLOL
     Indication: HYPERTENSION
     Route: 048
     Dates: start: 20180920
  24. CALCIUM [Concomitant]
     Active Substance: CALCIUM
     Indication: PROPHYLAXIS
     Route: 048
     Dates: start: 20180801
  25. ALLOPURINOL. [Concomitant]
     Active Substance: ALLOPURINOL
     Indication: TUMOUR LYSIS SYNDROME
     Route: 048
     Dates: start: 20180926
  26. METOCLOPRAMIDE. [Concomitant]
     Active Substance: METOCLOPRAMIDE
     Indication: NAUSEA
     Route: 048
     Dates: start: 20181023, end: 20190409
  27. AMLODIPINE [Concomitant]
     Active Substance: AMLODIPINE BESYLATE
     Indication: HYPERTENSION
     Route: 048
     Dates: start: 20181025

REACTIONS (2)
  - Atrial fibrillation [Recovered/Resolved]
  - Gastritis [Recovered/Resolved]

NARRATIVE: CASE EVENT DATE: 20190320
